FAERS Safety Report 15289024 (Version 1)
Quarter: 2018Q3

REPORT INFORMATION
  Report Type: Spontaneous
  Country: US (occurrence: US)
  Receive Date: 20180803
  Receipt Date: 20180803
  Transmission Date: 20181010
  Serious: No
  Sender: FDA-Public Use
  Company Number: None

PATIENT
  Sex: Female

DRUGS (4)
  1. OTREXUP [Suspect]
     Active Substance: METHOTREXATE
     Indication: PSORIATIC ARTHROPATHY
     Dosage: 10MG (0.4 ML) Q WEEKLY SUBQ
     Route: 058
     Dates: start: 201804
  2. STELARA [Suspect]
     Active Substance: USTEKINUMAB
     Indication: PSORIATIC ARTHROPATHY
  3. OTREXUP [Suspect]
     Active Substance: METHOTREXATE
     Indication: PSORIASIS
  4. STELARA [Suspect]
     Active Substance: USTEKINUMAB
     Indication: PSORIASIS

REACTIONS (3)
  - Cerebral disorder [None]
  - Drug effect decreased [None]
  - Joint swelling [None]
